FAERS Safety Report 9363258 (Version 1)
Quarter: 2013Q2

REPORT INFORMATION
  Report Type: Spontaneous
  Country: US (occurrence: None)
  Receive Date: 20130621
  Receipt Date: 20130621
  Transmission Date: 20140414
  Serious: No
  Sender: FDA-Public Use
  Company Number: None

PATIENT
  Age: 67 Year
  Sex: Male
  Weight: 90.27 kg

DRUGS (1)
  1. ULORIC [Suspect]

REACTIONS (3)
  - Pain [None]
  - Pyrexia [None]
  - Hot flush [None]
